FAERS Safety Report 6580450-8 (Version None)
Quarter: 2010Q1

REPORT INFORMATION
  Report Type: 
  Country: None (occurrence: None)
  Receive Date: 20100212
  Receipt Date: 20100209
  Transmission Date: 20100710
  Serious: Yes (Death)
  Sender: FDA-Public Use
  Company Number: PHHY2010JP01899

PATIENT
  Sex: Female

DRUGS (6)
  1. RASILEZ [Suspect]
     Indication: HYPERTENSION
     Dosage: 150 MG DAILY
     Route: 048
     Dates: start: 20091109
  2. BLOPRESS [Suspect]
     Indication: HYPERTENSION
     Dosage: 4 MG, UNK
     Route: 048
  3. DIART [Suspect]
     Indication: CARDIAC FAILURE
     Dosage: 60 MG, UNK
     Route: 048
  4. FUROSEMIDE [Suspect]
     Indication: CARDIAC FAILURE
     Dosage: 20 MG, UNK
     Route: 048
  5. ALLOPURINOL [Suspect]
     Indication: HYPERURICAEMIA
     Dosage: 100 MG, UNK
     Route: 048
  6. BAKUMONDOUTO [Suspect]
     Indication: ASTHMA
     Dosage: 2.5 G, UNK
     Route: 048
     Dates: start: 20091222

REACTIONS (3)
  - ARRHYTHMIA [None]
  - DEATH [None]
  - SUDDEN DEATH [None]
